FAERS Safety Report 7582945 (Version 3)
Quarter: 2021Q3

REPORT INFORMATION
  Report Type: Spontaneous
  Country: GB (occurrence: GB)
  Receive Date: 20100914
  Receipt Date: 20210716
  Transmission Date: 20211014
  Serious: Yes (Hospitalization, Disabling, Other)
  Sender: FDA-Public Use
  Company Number: GB-RANBAXY-2010RR-36550

PATIENT
  Age: 70 Year
  Sex: Male

DRUGS (18)
  1. CIPROFLOXACIN. [Suspect]
     Active Substance: CIPROFLOXACIN
     Indication: CHALAZION
     Dosage: 750 MG, 2X PER DAY
     Route: 048
  2. METRONIDAZOLE. [Interacting]
     Active Substance: METRONIDAZOLE
     Indication: CHALAZION
     Dosage: 400 MG, 3X PER DAY
     Route: 048
  3. METRONIDAZOLE. [Interacting]
     Active Substance: METRONIDAZOLE
     Indication: ANTIBIOTIC THERAPY
     Dosage: 400 MG, 3X PER DAY
     Route: 048
  4. MEROPENEM. [Interacting]
     Active Substance: MEROPENEM
     Indication: ANTIBIOTIC THERAPY
     Dosage: 2 G, 2X PER DAY
     Route: 042
  5. CIPROFLOXACIN. [Suspect]
     Active Substance: CIPROFLOXACIN
     Indication: ANTIBIOTIC THERAPY
     Dosage: 750 MG, 2X PER DAY
     Route: 048
  6. ERYTHROMYCIN. [Interacting]
     Active Substance: ERYTHROMYCIN
     Indication: ANTIBIOTIC THERAPY
     Dosage: 250 MG, 4X PER DAY
     Route: 048
  7. VITAMIN K [Concomitant]
     Active Substance: PHYTONADIONE
     Indication: PRODUCT USED FOR UNKNOWN INDICATION
     Dosage: UNK
     Route: 065
  8. MEROPENEM. [Interacting]
     Active Substance: MEROPENEM
     Indication: CELLULITIS
     Dosage: 2 G, 2X PER DAY
     Route: 030
  9. CLOPIDOGREL [Interacting]
     Active Substance: CLOPIDOGREL BISULFATE
     Indication: ANTIBIOTIC THERAPY
     Dosage: 75 MILLIGRAM, DAILY
     Route: 048
  10. TEICOPLANIN [Interacting]
     Active Substance: TEICOPLANIN
     Indication: ANTIBIOTIC THERAPY
  11. ERYTHROMYCIN. [Interacting]
     Active Substance: ERYTHROMYCIN
     Indication: DIABETES MELLITUS
     Dosage: 250 MG, 4X PER DAY
     Route: 048
  12. TEICOPLANIN [Interacting]
     Active Substance: TEICOPLANIN
     Indication: CELLULITIS
     Dosage: 400 MG, 1X PER DAY
     Route: 030
  13. WARFARIN [Interacting]
     Active Substance: WARFARIN
     Indication: PULMONARY EMBOLISM
     Dosage: NI
     Route: 065
  14. WARFARIN [Interacting]
     Active Substance: WARFARIN
     Indication: FACTOR V DEFICIENCY
  15. MEROPENEM. [Interacting]
     Active Substance: MEROPENEM
     Dosage: 2 G, 2X PER DAY
     Route: 042
  16. ASPIRIN. [Interacting]
     Active Substance: ASPIRIN
     Indication: ANTIPLATELET THERAPY
     Dosage: PATIENT RECEIVED 300MG ON ADMITTANCE AND STARTED ON A 75MG/DAY REGIME
     Route: 065
  17. ASPIRIN. [Interacting]
     Active Substance: ASPIRIN
     Dosage: PATIENT RECEIVED 300MG ON ADMITTANCE AND STARTED ON A 75MG/DAY REGIME
     Route: 065
  18. CLOPIDOGREL [Interacting]
     Active Substance: CLOPIDOGREL BISULFATE
     Indication: CHEST PAIN
     Dosage: 300 MILLIGRAM, DAILY
     Route: 048

REACTIONS (12)
  - Coagulation time prolonged [Recovered/Resolved]
  - Potentiating drug interaction [Recovered/Resolved with Sequelae]
  - Headache [Unknown]
  - Nausea [Unknown]
  - International normalised ratio increased [Recovered/Resolved]
  - Drug interaction [Recovered/Resolved]
  - Pyrexia [Unknown]
  - Decreased appetite [Unknown]
  - Hyphaema [Recovered/Resolved with Sequelae]
  - Intraocular pressure increased [Not Recovered/Not Resolved]
  - Eye pain [Recovered/Resolved with Sequelae]
  - Visual acuity reduced [Unknown]
